FAERS Safety Report 4642247-5 (Version None)
Quarter: 2005Q2

REPORT INFORMATION
  Report Type: 
  Country: None (occurrence: None)
  Receive Date: 20050422
  Receipt Date: 20050407
  Transmission Date: 20051028
  Serious: Yes (Death)
  Sender: FDA-Public Use
  Company Number: US-BOEHRINGER INGELHEIM PHARMACEUTICALS, INC.-2005-BP-05746BP

PATIENT
  Age: 39 Year
  Sex: Male

DRUGS (1)
  1. MOBIC [Suspect]
     Indication: PAIN
     Route: 048

REACTIONS (2)
  - ARRHYTHMIA [None]
  - CARDIAC ARREST [None]
